FAERS Safety Report 7761983-5 (Version None)
Quarter: 2011Q3

REPORT INFORMATION
  Report Type: 
  Country: None (occurrence: None)
  Receive Date: 20110920
  Receipt Date: 20110824
  Transmission Date: 20111222
  Serious: Yes (Other)
  Sender: FDA-Public Use
  Company Number: DE-UCBSA-040205

PATIENT

DRUGS (3)
  1. LEVODOPA [Concomitant]
     Indication: PARKINSON'S DISEASE
     Dosage: 3X100/25 MG; 300 MG
  2. NEUPRO [Suspect]
     Indication: PARKINSON'S DISEASE
     Dosage: 6 MG/24 HOUR
  3. LEVODOPA [Concomitant]
     Dosage: 200 MG; 200/250 MG

REACTIONS (1)
  - ENDOCARDITIS [None]
